FAERS Safety Report 4576255-X (Version None)
Quarter: 2005Q1

REPORT INFORMATION
  Report Type: 
  Country: None (occurrence: None)
  Receive Date: 20050207
  Receipt Date: 20050127
  Transmission Date: 20050727
  Serious: Yes (Hospitalization, Other)
  Sender: FDA-Public Use
  Company Number: 2004-12-0006

PATIENT
  Age: 54 Year
  Sex: Male
  Weight: 70 kg

DRUGS (5)
  1. GENTALLINE (GENTAMICIN SULFATE) INJECTABLE SOLUTION [Suspect]
     Indication: OSTEITIS
     Dosage: 160 MG QD INTRAMUSCULAR
     Route: 030
     Dates: start: 20041026, end: 20041108
  2. GENTALLINE (GENTAMICIN SULFATE) INJECTABLE SOLUTION [Suspect]
     Indication: STAPHYLOCOCCAL INFECTION
     Dosage: 160 MG QD INTRAMUSCULAR
     Route: 030
     Dates: start: 20041026, end: 20041108
  3. LASIX [Suspect]
     Indication: CIRRHOSIS ALCOHOLIC
     Dosage: 40 ORAL
     Route: 048
  4. LDACTONE [Concomitant]
  5. DURAGESIC [Concomitant]

REACTIONS (5)
  - CEREBELLAR SYNDROME [None]
  - NORMOCHROMIC NORMOCYTIC ANAEMIA [None]
  - POLYNEUROPATHY [None]
  - THROMBOCYTOPENIA [None]
  - WERNICKE'S ENCEPHALOPATHY [None]
